FAERS Safety Report 9310155 (Version 1)
Quarter: 2013Q2

REPORT INFORMATION
  Report Type: Spontaneous
  Country: US (occurrence: US)
  Receive Date: 20130527
  Receipt Date: 20130527
  Transmission Date: 20140414
  Serious: No
  Sender: FDA-Public Use
  Company Number: US-B.I. PHARMACEUTICALS,INC./RIDGEFIELD-2013-BI-14562BP

PATIENT
  Sex: Female
  Weight: 63.75 kg

DRUGS (13)
  1. PRADAXA [Suspect]
     Indication: ATRIAL FIBRILLATION
     Dosage: 150 MG
     Route: 048
  2. PRADAXA [Suspect]
     Indication: TRANSIENT ISCHAEMIC ATTACK
  3. PLAVIX [Suspect]
     Indication: TRANSIENT ISCHAEMIC ATTACK
     Dosage: 75 MG
  4. LISINOPRIL [Concomitant]
     Dosage: DAILY DOSE: AS NEEDED
     Route: 048
  5. LEVOTHYROXINE [Concomitant]
     Dosage: 0.1 MCG
     Route: 048
  6. OMEPRAZOLE [Concomitant]
     Dosage: 40 MG
  7. CITALOPRAM [Concomitant]
     Dosage: 20 MG
  8. TYLENOL PM [Concomitant]
     Dosage: AT BED TIME
  9. LIPITOR [Concomitant]
     Dosage: 80 MG
  10. SUPER B COMPLES [Concomitant]
  11. MVI [Concomitant]
  12. LASIX [Concomitant]
     Dosage: 80 MG
  13. POTASSIUM [Concomitant]
     Dosage: 20 MEQ

REACTIONS (1)
  - Hypoaesthesia [Unknown]
